FAERS Safety Report 9524218 (Version 1)
Quarter: 2013Q1

REPORT INFORMATION
  Report Type: Spontaneous
  Country: US (occurrence: None)
  Receive Date: 20130305
  Receipt Date: 20130305
  Transmission Date: 20140127
  Serious: Yes (Other)
  Sender: FDA-Public Use
  Company Number: 163-21880-12031065

PATIENT
  Age: 58 Year
  Sex: Female
  Weight: 93.9 kg

DRUGS (18)
  1. REVLIMID (LENALIDOMIDE) (25 MILLIGRAM, CAPSULES) [Suspect]
     Dosage: 25 MG, DAILY 14 DAYS ON 7 OFF Q
     Dates: start: 20110401, end: 201106
  2. ALLEGRA (FEXOFENADINE HYDROCHLORIDE) (UNKNOWN) [Concomitant]
  3. ASPIRIN (ACETYLSALICYLIC ACID) (UNKNOWN) (ACETYLSALICYLIC ACID) [Concomitant]
  4. CALCIUM +D (OS-CAL) (UNKNOWN) [Concomitant]
  5. FOLIC ACID (FOLIC ACID) (UNKNOWN) [Concomitant]
  6. LANSOPRAZOLE (LANSOPRAZOLE (UNKNOWN) [Concomitant]
  7. L-GLUTAMINE (LEVOGLUTAMIDE) (UNKNOWN) [Concomitant]
  8. LIDOCAINE (LIDOCAINE) (UNKNOWN) [Concomitant]
  9. LOSARTAN (LOSARTAN) (UNKNOWN) [Concomitant]
  10. METOPROLOL (METOPROLOL) (UNKNOWN) [Concomitant]
  11. NASONEX (MOMETASONE FUROATE) (UNKNOWN) [Concomitant]
  12. OMEGA 3 (FISH OIL) (UNKNOWN) [Concomitant]
  13. ONDANSETRON (ONDANSETRON) (UNKNOWN) [Concomitant]
  14. POTASSIUM (POTASSIUM) (UNKNOWN) [Concomitant]
  15. PREMARIN (ESTROGENS CONJUGATED) (UNKNOWN) [Concomitant]
  16. TRAMADOL (TRAMADOL) (UNKNOWN) [Concomitant]
  17. VITAMIN B (VITAMIN B) (UNKNOWN) [Concomitant]
  18. ZOLPIDEM (ZOLPIDEM) (UNKNOWN) (ZOLPIDEM) [Concomitant]

REACTIONS (4)
  - Pancytopenia [None]
  - White blood cell count decreased [None]
  - Neutrophil count decreased [None]
  - Disease progression [None]
